FAERS Safety Report 20642947 (Version 1)
Quarter: 2022Q1

REPORT INFORMATION
  Report Type: Spontaneous
  Country: BR (occurrence: BR)
  Receive Date: 20220328
  Receipt Date: 20220328
  Transmission Date: 20220423
  Serious: Yes (Other)
  Sender: FDA-Public Use
  Company Number: BR-BoehringerIngelheim-2022-BI-160680

PATIENT
  Age: 50 Year
  Sex: Female
  Weight: 94 kg

DRUGS (2)
  1. BEROTEC [Suspect]
     Active Substance: FENOTEROL HYDROBROMIDE
     Indication: Chronic obstructive pulmonary disease
     Dosage: ABOUT ONCE A WEEK
     Route: 055
     Dates: start: 202001
  2. ATROVENT [Suspect]
     Active Substance: IPRATROPIUM BROMIDE
     Indication: Chronic obstructive pulmonary disease
     Dosage: ABOUT ONCE A WEEK
     Route: 055

REACTIONS (11)
  - Lung neoplasm malignant [Unknown]
  - Seasonal allergy [Unknown]
  - COVID-19 [Recovered/Resolved]
  - Alopecia [Unknown]
  - Weight increased [Unknown]
  - Anxiety [Unknown]
  - Anosmia [Unknown]
  - Ageusia [Unknown]
  - Lung disorder [Unknown]
  - Fatigue [Unknown]
  - Drug ineffective [Unknown]

NARRATIVE: CASE EVENT DATE: 20200101
